FAERS Safety Report 9602759 (Version 1)
Quarter: 2013Q4

REPORT INFORMATION
  Report Type: Spontaneous
  Country: US (occurrence: US)
  Receive Date: 20131007
  Receipt Date: 20131007
  Transmission Date: 20140711
  Serious: Yes (Death)
  Sender: FDA-Public Use
  Company Number: US-B.I. PHARMACEUTICALS,INC./RIDGEFIELD-2013-BI-31438BP

PATIENT
  Sex: Male

DRUGS (2)
  1. GILOTRIF [Suspect]
     Indication: BRONCHIAL CARCINOMA
     Dosage: 40 MG
     Route: 048
  2. GILOTRIF [Suspect]
     Indication: LUNG NEOPLASM MALIGNANT

REACTIONS (1)
  - Death [Fatal]
